FAERS Safety Report 18251212 (Version 1)
Quarter: 2020Q3

REPORT INFORMATION
  Report Type: Spontaneous
  Country: US (occurrence: US)
  Receive Date: 20200910
  Receipt Date: 20200910
  Transmission Date: 20201103
  Serious: No
  Sender: FDA-Public Use
  Company Number: NVSC2020US245453

PATIENT
  Sex: Female

DRUGS (1)
  1. VIVELLE?DOT [Suspect]
     Active Substance: ESTRADIOL
     Indication: MENOPAUSAL SYMPTOMS
     Dosage: 0.075 MG
     Route: 062
     Dates: start: 201910

REACTIONS (4)
  - Feeling abnormal [Unknown]
  - Product adhesion issue [Unknown]
  - Drug ineffective [Unknown]
  - Application site rash [Unknown]
